FAERS Safety Report 5715660-2 (Version None)
Quarter: 2008Q2

REPORT INFORMATION
  Report Type: 
  Country: None (occurrence: None)
  Receive Date: 20080423
  Receipt Date: 20080423
  Transmission Date: 20081010
  Serious: Yes (Other)
  Sender: FDA-Public Use
  Company Number: None

PATIENT
  Age: 8 Year
  Sex: Male
  Weight: 29.4838 kg

DRUGS (2)
  1. ROBUTISSIN [Suspect]
     Indication: COUGH
     Dosage: 1 TBSP 1 X PER DAY PO
     Route: 048
     Dates: start: 20080324, end: 20080325
  2. NYQUIL CHILDREN'S COUGH AND COLD [Suspect]
     Indication: COUGH
     Dosage: 1 TBSP 1 X PER DAY -ALT.- PO
     Route: 048
     Dates: start: 20080421, end: 20080422

REACTIONS (6)
  - ABNORMAL BEHAVIOUR [None]
  - ANXIETY [None]
  - HYPERHIDROSIS [None]
  - INCOHERENT [None]
  - MENTAL DISORDER [None]
  - PANIC REACTION [None]
